FAERS Safety Report 14627940 (Version 4)
Quarter: 2018Q2

REPORT INFORMATION
  Report Type: Report from Study
  Country: US (occurrence: US)
  Receive Date: 20180312
  Receipt Date: 20180416
  Transmission Date: 20180711
  Serious: Yes (Death, Hospitalization, Other)
  Sender: FDA-Public Use
  Company Number: US-ACTELION-A-NJ2018-168794

PATIENT
  Age: 27 Year
  Sex: Male

DRUGS (5)
  1. ADEMPAS [Concomitant]
     Active Substance: RIOCIGUAT
     Dosage: 2.5 MG, TID
     Dates: start: 20160705, end: 20180327
  2. VELETRI [Suspect]
     Active Substance: EPOPROSTENOL
     Indication: PULMONARY ARTERIAL HYPERTENSION
     Dosage: 11 NG/KG, PER MIN
     Route: 042
     Dates: start: 20180131, end: 20180324
  3. OPSUMIT [Suspect]
     Active Substance: MACITENTAN
     Indication: PULMONARY ARTERIAL HYPERTENSION
     Dosage: 10 MG, QD
     Route: 048
     Dates: start: 20150921, end: 20180324
  4. VELETRI [Suspect]
     Active Substance: EPOPROSTENOL
     Dosage: 18 NG/KG, PER MIN
     Route: 042
     Dates: end: 20180324
  5. OXYGEN. [Concomitant]
     Active Substance: OXYGEN

REACTIONS (17)
  - Acute kidney injury [Fatal]
  - Loss of personal independence in daily activities [Not Recovered/Not Resolved]
  - Asthenia [Unknown]
  - Hepatic failure [Fatal]
  - Decreased appetite [Unknown]
  - Multiple organ dysfunction syndrome [Fatal]
  - Nausea [Not Recovered/Not Resolved]
  - Hypotension [Unknown]
  - Atrial fibrillation [Unknown]
  - Condition aggravated [Not Recovered/Not Resolved]
  - Paracentesis [Unknown]
  - Dyspnoea [Unknown]
  - Impaired quality of life [Unknown]
  - Gait disturbance [Unknown]
  - Hepatic cirrhosis [Not Recovered/Not Resolved]
  - Pulmonary arterial hypertension [Not Recovered/Not Resolved]
  - Fluid retention [Unknown]

NARRATIVE: CASE EVENT DATE: 20180221
